FAERS Safety Report 8657863 (Version 2)
Quarter: 2013Q2

REPORT INFORMATION
  Report Type: Spontaneous
  Country: US (occurrence: SK)
  Receive Date: 20120710
  Receipt Date: 20130521
  Transmission Date: 20140414
  Serious: Yes (Other)
  Sender: FDA-Public Use
  Company Number: SK-009507513-1206USA04453

PATIENT
  Age: 16 Year
  Sex: Female
  Weight: 56 kg

DRUGS (5)
  1. SINGULAIR 4 MG GRANULADO [Suspect]
     Indication: RHINITIS ALLERGIC
     Dosage: 10 MG, UNK
     Route: 048
     Dates: start: 20110512, end: 20110615
  2. SINGULAIR 4 MG GRANULADO [Suspect]
     Indication: ASTHMA
  3. CEZERA [Concomitant]
     Dosage: 1 DF, QD
  4. AVAMYS [Concomitant]
     Route: 055
  5. FLIXOTIDE [Concomitant]
     Dosage: 250 MICROGRAM, UNK

REACTIONS (3)
  - Vertigo [Recovered/Resolved]
  - Nausea [Recovered/Resolved]
  - Vomiting [Recovered/Resolved]
